FAERS Safety Report 7235997-8 (Version None)
Quarter: 2011Q1

REPORT INFORMATION
  Report Type: 
  Country: None (occurrence: None)
  Receive Date: 20110120
  Receipt Date: 20110118
  Transmission Date: 20110831
  Serious: Yes (Hospitalization)
  Sender: FDA-Public Use
  Company Number: B0695078A

PATIENT
  Sex: Male

DRUGS (2)
  1. NIMESULIDE [Suspect]
     Indication: TOOTHACHE
     Dosage: 100MG PER DAY
     Route: 048
     Dates: start: 20100706, end: 20100706
  2. AUGMENTIN [Suspect]
     Indication: TOOTHACHE
     Dosage: 1G PER DAY
     Route: 048
     Dates: start: 20100706, end: 20100706

REACTIONS (3)
  - GENERALISED ERYTHEMA [None]
  - PRURITUS [None]
  - CONJUNCTIVAL DISORDER [None]
